FAERS Safety Report 6800808-9 (Version None)
Quarter: 2010Q2

REPORT INFORMATION
  Report Type: 
  Country: None (occurrence: None)
  Receive Date: 20100629
  Receipt Date: 20100618
  Transmission Date: 20101027
  Serious: Yes (Other)
  Sender: FDA-Public Use
  Company Number: CA-JNJFOC-20100607054

PATIENT
  Sex: Female
  Weight: 91 kg

DRUGS (9)
  1. REMICADE [Suspect]
     Indication: JUVENILE ARTHRITIS
     Route: 042
  2. DILTIAZEM [Concomitant]
     Route: 048
  3. MONOCOR [Concomitant]
     Route: 048
  4. PREDNISONE [Concomitant]
     Route: 048
  5. PARIET [Concomitant]
     Route: 048
  6. INDOMETHACIN [Concomitant]
  7. SYNTHROID [Concomitant]
  8. CRESTOR [Concomitant]
  9. ALL OTHER THERAPEUTIC DRUG [Concomitant]

REACTIONS (4)
  - HYPERHIDROSIS [None]
  - NAUSEA [None]
  - PALPITATIONS [None]
  - TYPE 2 DIABETES MELLITUS [None]
